FAERS Safety Report 4520964-5 (Version None)
Quarter: 2004Q4

REPORT INFORMATION
  Report Type: 
  Country: None (occurrence: None)
  Receive Date: 20041208
  Receipt Date: 20041129
  Transmission Date: 20050328
  Serious: Yes (Hospitalization)
  Sender: FDA-Public Use
  Company Number: US-JNJFOC-20041103056

PATIENT
  Sex: Male
  Weight: 88.45 kg

DRUGS (10)
  1. NATRECOR [Suspect]
     Route: 042
  2. NATRECOR [Suspect]
     Route: 042
  3. NATRECOR [Suspect]
     Dosage: 2 UG/KG BOLUS FOLLOWED BY 0.01MCG/KG/MINUTE INFUSION OVER A FOUR HOUR PERIOD
     Route: 042
  4. LASIX [Concomitant]
     Route: 049
  5. LORAZEPAM [Concomitant]
     Route: 049
  6. ASPIRIN [Concomitant]
     Route: 049
  7. COUMADIN [Concomitant]
     Route: 049
  8. DIGITEK [Concomitant]
     Route: 049
  9. MICRO-K [Concomitant]
     Route: 065
  10. ZOLOFT [Concomitant]
     Route: 049

REACTIONS (7)
  - ABDOMINAL DISTENSION [None]
  - ASCITES [None]
  - BLOOD BILIRUBIN INCREASED [None]
  - JAUNDICE [None]
  - MENTAL STATUS CHANGES [None]
  - TRANSIENT ISCHAEMIC ATTACK [None]
  - WEIGHT INCREASED [None]
